FAERS Safety Report 6358967-0 (Version None)
Quarter: 2009Q3

REPORT INFORMATION
  Report Type: 
  Country: None (occurrence: None)
  Receive Date: 20090914
  Receipt Date: 20090911
  Transmission Date: 20100115
  Serious: No
  Sender: FDA-Public Use
  Company Number: 006005

PATIENT
  Age: 68 Year
  Sex: Female

DRUGS (7)
  1. PLETAL [Suspect]
     Indication: MYOCARDIAL INFARCTION
     Route: 048
  2. ASPIRIN [Concomitant]
  3. INSULIN (INSULIN) [Concomitant]
  4. ANTIBIOTIC PREPARATIONS (ANTIBIOTIC PREPARATIONS) [Concomitant]
  5. ERYTHROPOIETIN (ERYTHROPOIETIN) [Concomitant]
  6. CONCENTRATED RED CELL (CONCENTRATED HUMAN RED) [Concomitant]
  7. PROTON PUMP INHIBITOR (PROTON PUMP INHIBITOR) [Concomitant]

REACTIONS (11)
  - ALTERED STATE OF CONSCIOUSNESS [None]
  - ANEURYSM RUPTURED [None]
  - AZOTAEMIA [None]
  - CHOLECYSTITIS [None]
  - GALLBLADDER NECROSIS [None]
  - GASTROENTERITIS [None]
  - HAEMATEMESIS [None]
  - HAEMOBILIA [None]
  - HAEMODIALYSIS [None]
  - MELAENA [None]
  - NEPHROGENIC ANAEMIA [None]
